FAERS Safety Report 11365877 (Version 1)
Quarter: 2015Q3

REPORT INFORMATION
  Report Type: Spontaneous
  Country: DK (occurrence: GB)
  Receive Date: 20150811
  Receipt Date: 20150811
  Transmission Date: 20151125
  Serious: Yes (Disabling)
  Sender: FDA-Public Use
  Company Number: GB-FRI-1000078739

PATIENT
  Age: 27 Year
  Sex: Male

DRUGS (1)
  1. CITALOPRAM [Suspect]
     Active Substance: CITALOPRAM HYDROBROMIDE
     Indication: ANXIETY
     Route: 048
     Dates: start: 201201

REACTIONS (9)
  - Tinnitus [Unknown]
  - Pain [Unknown]
  - Confusional state [Unknown]
  - Disturbance in attention [Unknown]
  - Bruxism [Unknown]
  - Chest discomfort [Unknown]
  - Dyspnoea [Unknown]
  - Anger [Unknown]
  - Amnesia [Unknown]
